FAERS Safety Report 21607916 (Version 1)
Quarter: 2022Q4

REPORT INFORMATION
  Report Type: Spontaneous
  Country: CN (occurrence: CN)
  Receive Date: 20221117
  Receipt Date: 20221117
  Transmission Date: 20230113
  Serious: Yes (Hospitalization)
  Sender: FDA-Public Use
  Company Number: CN-AstraZeneca-2022A366346

PATIENT
  Age: 72 Year
  Sex: Male

DRUGS (1)
  1. METOPROLOL SUCCINATE [Suspect]
     Active Substance: METOPROLOL SUCCINATE
     Indication: Angina pectoris
     Route: 048
     Dates: start: 20220810, end: 20220919

REACTIONS (8)
  - Cough [Recovering/Resolving]
  - Tachypnoea [Recovering/Resolving]
  - Decreased activity [Recovering/Resolving]
  - Productive cough [Recovering/Resolving]
  - Sputum retention [Recovering/Resolving]
  - Chest discomfort [Recovering/Resolving]
  - Wheezing [Recovering/Resolving]
  - Dyspnoea [Recovering/Resolving]

NARRATIVE: CASE EVENT DATE: 20220914
